FAERS Safety Report 21187891 (Version 1)
Quarter: 2022Q3

REPORT INFORMATION
  Report Type: Spontaneous
  Country: JP (occurrence: JP)
  Receive Date: 20220809
  Receipt Date: 20220809
  Transmission Date: 20221027
  Serious: Yes (Other)
  Sender: FDA-Public Use
  Company Number: JP-BAYER-2022A109627

PATIENT

DRUGS (1)
  1. VENTAVIS [Suspect]
     Active Substance: ILOPROST
     Indication: Pulmonary hypertension
     Dosage: TID
     Route: 055

REACTIONS (4)
  - Right ventricular failure [Unknown]
  - Bronchopulmonary aspergillosis [Unknown]
  - Lung neoplasm malignant [Unknown]
  - Inappropriate schedule of product administration [Unknown]
